FAERS Safety Report 18817887 (Version 2)
Quarter: 2021Q1

REPORT INFORMATION
  Report Type: Spontaneous
  Country: US (occurrence: US)
  Receive Date: 20210201
  Receipt Date: 20210223
  Transmission Date: 20210419
  Serious: No
  Sender: FDA-Public Use
  Company Number: US-PFIZER INC-2021069847

PATIENT
  Age: 68 Year
  Sex: Female
  Weight: 48.98 kg

DRUGS (1)
  1. EUCRISA [Suspect]
     Active Substance: CRISABOROLE
     Indication: ECZEMA
     Dosage: UNK
     Dates: start: 202101

REACTIONS (2)
  - Drug ineffective [Unknown]
  - Condition aggravated [Unknown]
